FAERS Safety Report 9034992 (Version 1)
Quarter: 2013Q1

REPORT INFORMATION
  Report Type: Spontaneous
  Country: DK (occurrence: None)
  Receive Date: 20130118
  Receipt Date: 20130118
  Transmission Date: 20140127
  Serious: Yes (Hospitalization)
  Sender: FDA-Public Use
  Company Number: 2013MA000432

PATIENT
  Age: 64 Year
  Sex: Male

DRUGS (6)
  1. BISOPROLOL FUMARATE AND HYDROCHLOROTHIAZIDE TABLETS, 2.5 MG/6.25 MG (PUREPAC) (GALENIC/BISOPROLOL/HYDROCHLOROTHIAZIDE/) [Suspect]
     Indication: CARDIAC DISORDER
     Route: 048
     Dates: start: 20111212, end: 20121212
  2. LUVION [Concomitant]
  3. OMEPRAZOLE [Concomitant]
  4. FUROSEMIDE [Concomitant]
  5. ACICLOVIR [Concomitant]
  6. NADROPARINA [Concomitant]

REACTIONS (3)
  - Dyspnoea [None]
  - Presyncope [None]
  - Asthenia [None]
